FAERS Safety Report 5551538-5 (Version None)
Quarter: 2007Q4

REPORT INFORMATION
  Report Type: 
  Country: None (occurrence: None)
  Receive Date: 20071129
  Receipt Date: 20070612
  Transmission Date: 20080405
  Serious: Yes (Hospitalization)
  Sender: FDA-Public Use
  Company Number: US200703002031

PATIENT
  Age: 45 Year
  Sex: Female
  Weight: 76.2 kg

DRUGS (6)
  1. ZYPREXA [Suspect]
     Indication: HALLUCINATION
     Dosage: 25 MG, 10 MG, 5 MG
     Dates: start: 20060330, end: 20060424
  2. ZYPREXA [Suspect]
     Indication: HALLUCINATION
     Dosage: 25 MG, 10 MG, 5 MG
     Dates: start: 20060425, end: 20060807
  3. ZYPREXA [Suspect]
     Indication: HALLUCINATION
     Dosage: 25 MG, 10 MG, 5 MG
     Dates: start: 20060808
  4. SEROQUEL [Concomitant]
  5. WELLBUTRIN [Concomitant]
  6. LEXAPRO [Concomitant]

REACTIONS (5)
  - BLOOD GLUCOSE INCREASED [None]
  - GLYCOSURIA [None]
  - OVERDOSE [None]
  - TYPE 2 DIABETES MELLITUS [None]
  - VISION BLURRED [None]
